FAERS Safety Report 8405099-3 (Version None)
Quarter: 2012Q2

REPORT INFORMATION
  Report Type: 
  Country: None (occurrence: None)
  Receive Date: 20120602
  Receipt Date: 20120524
  Transmission Date: 20120825
  Serious: Yes (Other)
  Sender: FDA-Public Use
  Company Number: US-BAYER-2012-053288

PATIENT
  Age: 8 Year
  Sex: Male
  Weight: 31 kg

DRUGS (1)
  1. ASPIRIN [Suspect]
     Route: 048

REACTIONS (3)
  - FEELING HOT [None]
  - INCOHERENT [None]
  - HALLUCINATION [None]
